FAERS Safety Report 18654637 (Version 1)
Quarter: 2020Q4

REPORT INFORMATION
  Report Type: Spontaneous
  Country: US (occurrence: US)
  Receive Date: 20201223
  Receipt Date: 20201223
  Transmission Date: 20210114
  Serious: Yes (Hospitalization)
  Sender: FDA-Public Use
  Company Number: None

PATIENT
  Age: 52 Year
  Sex: Female
  Weight: 74.8 kg

DRUGS (1)
  1. BAMLANIVIMAB. [Suspect]
     Active Substance: BAMLANIVIMAB
     Indication: COVID-19
     Dosage: ?          OTHER FREQUENCY:ONCE;?
     Route: 042
     Dates: start: 20201214, end: 20201214

REACTIONS (16)
  - Vomiting [None]
  - Pharyngeal swelling [None]
  - Diarrhoea [None]
  - Nausea [None]
  - Micturition urgency [None]
  - Diabetes mellitus inadequate control [None]
  - Gastritis [None]
  - Melaena [None]
  - Adverse drug reaction [None]
  - Peptic ulcer [None]
  - Pollakiuria [None]
  - Oesophagitis [None]
  - Abdominal pain upper [None]
  - Swelling [None]
  - Gastroenteritis viral [None]
  - Impaired gastric emptying [None]

NARRATIVE: CASE EVENT DATE: 20201221
